FAERS Safety Report 9087975 (Version 2)
Quarter: 2013Q3

REPORT INFORMATION
  Report Type: Spontaneous
  Country: US (occurrence: US)
  Receive Date: 20130201
  Receipt Date: 20130903
  Transmission Date: 20140515
  Serious: Yes (Other)
  Sender: FDA-Public Use
  Company Number: US-BAYER-2013-010163

PATIENT
  Age: 28 Year
  Sex: Female

DRUGS (1)
  1. MIRENA [Suspect]
     Indication: CONTRACEPTION
     Dosage: 20 MCG/24HR, CONT
     Route: 015
     Dates: start: 20100728, end: 20111011

REACTIONS (8)
  - Intra-abdominal haemorrhage [None]
  - Haemorrhagic ovarian cyst [None]
  - Acne [None]
  - Acne [None]
  - Erythema [None]
  - Adnexa uteri pain [None]
  - Nausea [None]
  - Pelvic pain [Recovering/Resolving]
